FAERS Safety Report 6261063-4 (Version None)
Quarter: 2009Q3

REPORT INFORMATION
  Report Type: 
  Country: None (occurrence: None)
  Receive Date: 20090709
  Receipt Date: 20090702
  Transmission Date: 20100115
  Serious: Yes (Other)
  Sender: FDA-Public Use
  Company Number: US-ASTRAZENECA-2009UW18486

PATIENT
  Sex: Female

DRUGS (1)
  1. ARIMIDEX [Suspect]
     Route: 048

REACTIONS (6)
  - DRUG TOXICITY [None]
  - FEELING ABNORMAL [None]
  - FLUID RETENTION [None]
  - HYPERHIDROSIS [None]
  - OEDEMA PERIPHERAL [None]
  - PALPITATIONS [None]
